FAERS Safety Report 8972894 (Version 1)
Quarter: 2012Q4

REPORT INFORMATION
  Report Type: 
  Country: BE (occurrence: BE)
  Receive Date: 20121219
  Receipt Date: 20121219
  Transmission Date: 20130627
  Serious: Yes (Other)
  Sender: FDA-Public Use
  Company Number: BE-AMGEN-BELSP2012081289

PATIENT
  Age: 64 Year

DRUGS (1)
  1. CINACALCET HCL [Suspect]
     Indication: HYPERPARATHYROIDISM PRIMARY
     Dosage: 60 mg, bid
     Dates: start: 20101128, end: 20121204

REACTIONS (4)
  - Lumbar spinal stenosis [Unknown]
  - Neuropathy peripheral [Unknown]
  - Gait disturbance [Unknown]
  - Pain [Unknown]
